FAERS Safety Report 7337455-9 (Version None)
Quarter: 2011Q1

REPORT INFORMATION
  Report Type: 
  Country: None (occurrence: None)
  Receive Date: 20110308
  Receipt Date: 20110225
  Transmission Date: 20110831
  Serious: Yes (Hospitalization, Other)
  Sender: FDA-Public Use
  Company Number: BR-US-EMD SERONO, INC.-7005729

PATIENT
  Sex: Male

DRUGS (13)
  1. LYRICA [Concomitant]
  2. VALIUM [Concomitant]
  3. TRAMADOL HCL [Concomitant]
  4. REBIF [Suspect]
     Route: 058
  5. REBIF [Suspect]
     Indication: RELAPSING-REMITTING MULTIPLE SCLEROSIS
     Route: 058
     Dates: start: 20100416
  6. HISPERIDINE [Concomitant]
  7. OMEPRAZOLE [Concomitant]
  8. CENTRUM [Concomitant]
  9. SERTRALINE [Concomitant]
  10. PREDSIM [Concomitant]
  11. CONDROFLEX [Concomitant]
  12. EXODUS (ESCITALOPRAM) [Concomitant]
  13. FLAVONID [Concomitant]

REACTIONS (12)
  - NOSOCOMIAL INFECTION [None]
  - HOLMES-ADIE PUPIL [None]
  - INJECTION SITE NODULE [None]
  - WOUND COMPLICATION [None]
  - OEDEMA PERIPHERAL [None]
  - SKIN DISCOLOURATION [None]
  - FEELING HOT [None]
  - VENOUS INSUFFICIENCY [None]
  - INJECTION SITE ERYTHEMA [None]
  - ERYSIPELAS [None]
  - DERMATITIS [None]
  - NODULE [None]
